FAERS Safety Report 17306239 (Version 1)
Quarter: 2020Q1

REPORT INFORMATION
  Report Type: Spontaneous
  Country: US (occurrence: US)
  Receive Date: 20200123
  Receipt Date: 20200123
  Transmission Date: 20200409
  Serious: No
  Sender: FDA-Public Use
  Company Number: US-US WORLDMEDS, LLC-USW201909-001714

PATIENT
  Sex: Female

DRUGS (3)
  1. PHENTERMINE. [Concomitant]
     Active Substance: PHENTERMINE
     Indication: WEIGHT DECREASED
  2. MYOBLOC [Suspect]
     Active Substance: RIMABOTULINUMTOXINB
     Indication: MUSCLE SPASMS
  3. MYOBLOC [Suspect]
     Active Substance: RIMABOTULINUMTOXINB
     Indication: MIGRAINE
     Dosage: UNKNOWN

REACTIONS (15)
  - Dysphagia [Not Recovered/Not Resolved]
  - Confusional state [Not Recovered/Not Resolved]
  - Parotid gland enlargement [Recovered/Resolved]
  - Injection site nodule [Recovered/Resolved]
  - Syringomyelia [Recovered/Resolved]
  - Amnesia [Not Recovered/Not Resolved]
  - Musculoskeletal stiffness [Not Recovered/Not Resolved]
  - Hypoaesthesia [Recovered/Resolved]
  - Injection site erythema [Recovered/Resolved]
  - Product use in unapproved indication [Unknown]
  - Asthenia [Not Recovered/Not Resolved]
  - Nausea [Not Recovered/Not Resolved]
  - Dry mouth [Not Recovered/Not Resolved]
  - Monoplegia [Recovered/Resolved]
  - Dizziness [Not Recovered/Not Resolved]
